FAERS Safety Report 13344969 (Version 4)
Quarter: 2017Q4

REPORT INFORMATION
  Report Type: Spontaneous
  Country: US (occurrence: US)
  Receive Date: 20170317
  Receipt Date: 20171106
  Transmission Date: 20180320
  Serious: No
  Sender: FDA-Public Use
  Company Number: US-PFIZER INC-2017106129

PATIENT
  Age: 28 Year
  Sex: Female
  Weight: 75.3 kg

DRUGS (40)
  1. LANSOPRAZOLE. [Concomitant]
     Active Substance: LANSOPRAZOLE
     Indication: GASTROOESOPHAGEAL REFLUX DISEASE
     Dosage: 30 MG, ONCE DAILY (15 MINUTES BEFORE BREAKFAST)
     Route: 048
     Dates: start: 2016
  2. OXYCODONE [Concomitant]
     Active Substance: OXYCODONE
     Indication: PAIN
     Dosage: 20 MG, 3X/DAY
     Route: 048
     Dates: start: 2016, end: 201706
  3. XANAX [Concomitant]
     Active Substance: ALPRAZOLAM
     Indication: ANXIETY
     Dosage: 0.5 MG, 2X/DAY (IN THE MORNING, ANOTHER IN THE AFTERNOON ABOUT 6 HOURS LATER)
     Route: 048
     Dates: start: 2016
  4. XANAX [Concomitant]
     Active Substance: ALPRAZOLAM
     Dosage: 3 MG, DAILY (1MG IN AM AND 2 MG AT NIGHT)
     Dates: start: 20170505, end: 201707
  5. PROVENTIL [Concomitant]
     Active Substance: ALBUTEROL
     Indication: ASTHMA
     Dosage: UNK, AS NEEDED (2 PUFFS AS NEEDED)
     Route: 055
     Dates: start: 2015
  6. AYR [Concomitant]
     Indication: NASAL DRYNESS
     Dosage: UNK, DAILY (2 PUFFS IN EACH NOSTRIL, DAILY)
     Route: 045
     Dates: start: 2015
  7. PROVENTIL [Concomitant]
     Active Substance: ALBUTEROL
     Dosage: UNK
     Dates: start: 2017
  8. ALLEGRA [Concomitant]
     Active Substance: FEXOFENADINE HYDROCHLORIDE
     Indication: SINUSITIS
  9. PAXIL [Concomitant]
     Active Substance: PAROXETINE HYDROCHLORIDE
     Indication: ANXIETY
     Dosage: 20 MG, UNK
     Route: 048
     Dates: start: 2015
  10. ADDERALL [Concomitant]
     Active Substance: AMPHETAMINE ASPARTATE\AMPHETAMINE SULFATE\DEXTROAMPHETAMINE SACCHARATE\DEXTROAMPHETAMINE SULFATE
     Dosage: 10 MG, UNK
     Route: 048
     Dates: end: 201703
  11. ADDERALL [Concomitant]
     Active Substance: AMPHETAMINE ASPARTATE\AMPHETAMINE SULFATE\DEXTROAMPHETAMINE SACCHARATE\DEXTROAMPHETAMINE SULFATE
     Dosage: 20 MG, ONCE DAILY
     Route: 048
     Dates: start: 201702, end: 201707
  12. VERAPAMIL [Concomitant]
     Active Substance: VERAPAMIL HYDROCHLORIDE
     Indication: MIGRAINE
     Dosage: 180 MG, UNK
  13. ALBUTEROL. [Concomitant]
     Active Substance: ALBUTEROL
     Indication: DYSPNOEA
     Dosage: UNK
     Dates: start: 2004
  14. CYCLOBENZAPRINE. [Concomitant]
     Active Substance: CYCLOBENZAPRINE
     Dosage: 10 MG, AS NEEDED (3X DAILY)
  15. XALKORI [Suspect]
     Active Substance: CRIZOTINIB
     Indication: METASTATIC MALIGNANT MELANOMA
     Dosage: 250 MG, TWICE DAILY (ONE IN MORNING AND ONE BEFORE)
     Route: 048
     Dates: start: 20170110
  16. MECLIZINE [Concomitant]
     Active Substance: MECLIZINE HYDROCHLORIDE
     Indication: DIZZINESS
     Dosage: 25 MG, AS NEEDED
     Route: 048
     Dates: start: 2016
  17. SUMATRIPTAN. [Concomitant]
     Active Substance: SUMATRIPTAN
     Indication: MIGRAINE
     Dosage: UNK
     Route: 048
     Dates: start: 2015
  18. SUMATRIPTAN. [Concomitant]
     Active Substance: SUMATRIPTAN
     Dosage: UNK
     Dates: start: 2016
  19. XANAX [Concomitant]
     Active Substance: ALPRAZOLAM
     Indication: PANIC ATTACK
     Dosage: 2 MG, ONCE DAILY (AT BEDTIME)
     Route: 048
  20. XALKORI [Suspect]
     Active Substance: CRIZOTINIB
     Indication: LUNG NEOPLASM MALIGNANT
  21. ADDERALL [Concomitant]
     Active Substance: AMPHETAMINE ASPARTATE\AMPHETAMINE SULFATE\DEXTROAMPHETAMINE SACCHARATE\DEXTROAMPHETAMINE SULFATE
     Indication: ATTENTION DEFICIT/HYPERACTIVITY DISORDER
     Dosage: UNK
     Dates: start: 2016
  22. MORPHINE [Concomitant]
     Active Substance: MORPHINE
     Indication: PAIN
     Dosage: 60 MG, TWICE DAILY
     Route: 048
     Dates: start: 2016, end: 201706
  23. AYR SALINE [Concomitant]
     Indication: NASAL DRYNESS
     Dosage: UNK, DAILY (APPLY TO NOSTRILS, EVERYDAY WITH QTIP)
     Route: 045
     Dates: start: 2015
  24. AYR SALINE [Concomitant]
     Indication: EPISTAXIS
  25. COLGATE PEROXYL [Concomitant]
     Indication: PAIN
     Dosage: UNK
     Dates: end: 201611
  26. LEVOTHYROXINE. [Concomitant]
     Active Substance: LEVOTHYROXINE
     Indication: THYROID DISORDER
     Dosage: UNK, (HALF A TABLET ON SUN AND ONE TABLET MON TO SAT)
     Route: 048
     Dates: start: 2016
  27. PAXIL [Concomitant]
     Active Substance: PAROXETINE HYDROCHLORIDE
     Dosage: 60 MG, UNK
     Dates: start: 20170508, end: 201707
  28. VERAPAMIL [Concomitant]
     Active Substance: VERAPAMIL HYDROCHLORIDE
     Dosage: 120 MG, ONCE DAILY (ONE IN THE MORNING)
     Route: 048
     Dates: end: 201708
  29. ALBUTEROL. [Concomitant]
     Active Substance: ALBUTEROL
     Indication: ASTHMA
     Dosage: 2.5 MG, UNK
     Route: 055
     Dates: start: 2016
  30. AYR [Concomitant]
     Indication: EPISTAXIS
  31. COLGATE PEROXYL [Concomitant]
     Dosage: UNK (FILL TO LINE ON CAP AND SWISH AROUND IN MOUTH)
     Dates: start: 2017
  32. EPSOM SALT [Concomitant]
     Active Substance: MAGNESIUM SULFATE
     Indication: PERIPHERAL SWELLING
     Dosage: UNK, AS NEEDED (2 CUPS WITH A FULL BATH TUB)
     Dates: start: 201701
  33. HYDROCORTISONE. [Concomitant]
     Active Substance: HYDROCORTISONE
     Dosage: 15 MG, DAILY (10 MG IN AM , 5 MG AFTERNOON)
     Dates: start: 20170313
  34. MELATONIN [Concomitant]
     Active Substance: MELATONIN
     Dosage: 5 MG, 1X/DAY (AT NIGHT)
     Dates: start: 201704
  35. ALLEGRA [Concomitant]
     Active Substance: FEXOFENADINE HYDROCHLORIDE
     Indication: HYPERSENSITIVITY
     Dosage: 180 MG, ONCE DAILY
     Route: 048
     Dates: start: 2016, end: 201701
  36. BOOST [Concomitant]
     Active Substance: DIETARY SUPPLEMENT
     Indication: SUPPLEMENTATION THERAPY
     Dosage: TWO BOTTLES (DF) A DAY
     Route: 048
     Dates: start: 2016, end: 201703
  37. LEVORA [Concomitant]
     Active Substance: ETHINYL ESTRADIOL\LEVONORGESTREL
     Indication: MENSTRUAL CYCLE MANAGEMENT
     Dosage: UNK, CYCLIC (ONCE A DAY FOR A 28 CYCLE)
     Route: 048
     Dates: start: 2007
  38. MIRALAX [Concomitant]
     Active Substance: POLYETHYLENE GLYCOL 3350
     Indication: CONSTIPATION
     Dosage: 17 MG, ONCE DAILY
     Route: 048
     Dates: start: 2016, end: 2017
  39. AMITIZA [Concomitant]
     Active Substance: LUBIPROSTONE
     Dosage: 24 UG, UNK
     Dates: start: 201704, end: 201707
  40. GENERLAC [Concomitant]
     Active Substance: LACTULOSE
     Dosage: 15 ML, UNK
     Dates: start: 201704, end: 201707

REACTIONS (2)
  - Peripheral swelling [Not Recovered/Not Resolved]
  - Headache [Not Recovered/Not Resolved]

NARRATIVE: CASE EVENT DATE: 201701
